FAERS Safety Report 14012278 (Version 1)
Quarter: 2017Q3

REPORT INFORMATION
  Report Type: Spontaneous
  Country: NZ (occurrence: NZ)
  Receive Date: 20170926
  Receipt Date: 20170926
  Transmission Date: 20171128
  Serious: Yes (Other)
  Sender: FDA-Public Use
  Company Number: NZ-ALLERGAN-1754338US

PATIENT
  Age: 52 Year
  Sex: Female

DRUGS (6)
  1. BOTOX [Suspect]
     Active Substance: ONABOTULINUMTOXINA
     Dosage: 14 UNITS, SINGLE
     Route: 030
     Dates: start: 2015, end: 2015
  2. BOTOX [Suspect]
     Active Substance: ONABOTULINUMTOXINA
     Indication: FACIAL SPASM
     Dosage: 27.5 UNITS, SINGLE
     Route: 030
     Dates: start: 2015, end: 2015
  3. BOTOX [Suspect]
     Active Substance: ONABOTULINUMTOXINA
     Indication: FACIAL ASYMMETRY
     Dosage: 27.5 UNITS, SINGLE
     Route: 030
     Dates: start: 2015, end: 2015
  4. BOTOX [Suspect]
     Active Substance: ONABOTULINUMTOXINA
     Dosage: 27.5 UNITS, SINGLE
     Route: 030
     Dates: start: 20151117, end: 20151117
  5. BOTOX [Suspect]
     Active Substance: ONABOTULINUMTOXINA
     Dosage: 14 UNITS, SINGLE
     Route: 030
     Dates: start: 2015, end: 2015
  6. BOTOX [Suspect]
     Active Substance: ONABOTULINUMTOXINA
     Dosage: 14 UNITS, SINGLE
     Route: 030
     Dates: start: 20151023, end: 20151023

REACTIONS (7)
  - Facial asymmetry [Unknown]
  - Blindness transient [Recovered/Resolved]
  - Swelling face [Not Recovered/Not Resolved]
  - Cerebrovascular accident [Not Recovered/Not Resolved]
  - Dystonia [Not Recovered/Not Resolved]
  - Off label use [Unknown]
  - Dermatitis [Unknown]

NARRATIVE: CASE EVENT DATE: 20151023
